FAERS Safety Report 8434654-X (Version None)
Quarter: 2012Q2

REPORT INFORMATION
  Report Type: 
  Country: None (occurrence: None)
  Receive Date: 20120323
  Receipt Date: 20110801
  Transmission Date: 20120825
  Serious: Yes (Hospitalization)
  Sender: FDA-Public Use
  Company Number: 163-21880-11061136

PATIENT
  Age: 78 Year
  Sex: Female

DRUGS (5)
  1. NORVASC [Concomitant]
  2. WELLBUTRIN XL [Concomitant]
  3. POTASSIUM CHLORIDE [Concomitant]
  4. REVLIMID [Suspect]
     Indication: MULTIPLE MYELOMA
     Dosage: 25 MG, 2 DAYS ON, 1 DAY OFF, PO
     Route: 048
     Dates: start: 20110518
  5. ZOCOR [Concomitant]

REACTIONS (5)
  - METASTASES TO CENTRAL NERVOUS SYSTEM [None]
  - CONFUSIONAL STATE [None]
  - MULTIPLE MYELOMA [None]
  - BACK PAIN [None]
  - BLOOD COUNT ABNORMAL [None]
